FAERS Safety Report 16687967 (Version 1)
Quarter: 2019Q3

REPORT INFORMATION
  Report Type: Spontaneous
  Country: US (occurrence: US)
  Receive Date: 20190809
  Receipt Date: 20190809
  Transmission Date: 20191004
  Serious: Yes (Other)
  Sender: FDA-Public Use
  Company Number: US-SA-2019SA217824

PATIENT
  Sex: Male

DRUGS (1)
  1. DUPIXENT [Suspect]
     Active Substance: DUPILUMAB
     Indication: DERMATITIS ATOPIC
     Dosage: UNK UNK, BID
     Route: 048
     Dates: start: 20190722

REACTIONS (4)
  - Thinking abnormal [Unknown]
  - Confusional state [Unknown]
  - Product use issue [Unknown]
  - Nervousness [Unknown]

NARRATIVE: CASE EVENT DATE: 20190722
